FAERS Safety Report 14266764 (Version 3)
Quarter: 2019Q1

REPORT INFORMATION
  Report Type: Report from Study
  Country: DE (occurrence: DE)
  Receive Date: 20171211
  Receipt Date: 20190319
  Transmission Date: 20190417
  Serious: Yes (Hospitalization)
  Sender: FDA-Public Use
  Company Number: DE-ROCHE-1368905

PATIENT
  Age: 71 Year
  Sex: Female
  Weight: 73 kg

DRUGS (14)
  1. XELODA [Suspect]
     Active Substance: CAPECITABINE
     Indication: COLON CANCER
     Dosage: ON DAYS 1 TO14 OF EACH CYCLE?DATE LAST ADMINISTRATION 11/NOV/2013
     Route: 048
     Dates: start: 20130923, end: 20131111
  2. OXALIPLATIN. [Suspect]
     Active Substance: OXALIPLATIN
     Indication: COLON CANCER
     Dosage: =170MG
     Route: 042
     Dates: start: 20130923, end: 20131111
  3. TILIDIN [Concomitant]
     Active Substance: NALOXONE HYDROCHLORIDE\TILIDINE HYDROCHLORIDE
     Indication: PAIN IN EXTREMITY
     Route: 065
     Dates: start: 20131111, end: 20140130
  4. MCP [Concomitant]
     Active Substance: METOCLOPRAMIDE HYDROCHLORIDE
     Indication: NAUSEA
     Route: 065
     Dates: start: 20131104, end: 20131111
  5. LOPERAMID [Concomitant]
     Active Substance: LOPERAMIDE
     Route: 048
     Dates: start: 20130930, end: 20131110
  6. XELODA [Suspect]
     Active Substance: CAPECITABINE
     Indication: COLON CANCER
  7. CARVEDILOL. [Concomitant]
     Active Substance: CARVEDILOL
     Indication: HYPERTENSION
     Route: 065
     Dates: start: 20130930
  8. BEVACIZUMAB. [Suspect]
     Active Substance: BEVACIZUMAB
     Route: 042
     Dates: start: 20131104, end: 20131104
  9. INNOHEP [Concomitant]
     Active Substance: TINZAPARIN SODIUM
     Indication: VARICOSE VEIN
     Route: 065
     Dates: start: 20131028, end: 20131106
  10. OMEP [Concomitant]
     Active Substance: OMEPRAZOLE
     Indication: NAUSEA
     Route: 065
     Dates: start: 20131104, end: 20131111
  11. DEXAMETHASON [Concomitant]
     Active Substance: DEXAMETHASONE
     Indication: PROPHYLAXIS
     Dosage: DATE LAST ADMINISTRATION 11/NOV/2013
     Route: 042
     Dates: start: 20130923, end: 20131111
  12. BEVACIZUMAB. [Suspect]
     Active Substance: BEVACIZUMAB
     Indication: COLON CANCER
     Dosage: 547.5MG-550.0MG
     Route: 042
     Dates: start: 20130923, end: 20130923
  13. ONDANSETRON [Concomitant]
     Active Substance: ONDANSETRON
     Indication: PROPHYLAXIS
     Dosage: DATE LAST ADMINISTRATION 11/NOV/2013
     Route: 042
     Dates: start: 20130923
  14. LOPERAMID [Concomitant]
     Active Substance: LOPERAMIDE
     Indication: DIARRHOEA
     Route: 065
     Dates: start: 20131009, end: 20131014

REACTIONS (1)
  - Cerebral infarction [Recovered/Resolved]

NARRATIVE: CASE EVENT DATE: 20131111
